FAERS Safety Report 25408441 (Version 2)
Quarter: 2025Q4

REPORT INFORMATION
  Report Type: Report from Study
  Country: EU (occurrence: EU)
  Receive Date: 20250606
  Receipt Date: 20251009
  Transmission Date: 20260117
  Serious: Yes (Hospitalization)
  Sender: ABBVIE
  Company Number: EU-ABBVIE-6309970

PATIENT
  Age: 65 Year
  Sex: Female

DRUGS (2)
  1. FOSCARBIDOPA\FOSLEVODOPA [Suspect]
     Active Substance: FOSCARBIDOPA\FOSLEVODOPA
     Indication: Parkinson^s disease
     Dosage: CRN 0.15 ML/H, CR 0.22 ML/H, CRH 0.24 ML/H, ED 0.10 ML
     Route: 058
     Dates: start: 20250408, end: 20250530
  2. FOSCARBIDOPA\FOSLEVODOPA [Suspect]
     Active Substance: FOSCARBIDOPA\FOSLEVODOPA
     Dosage: CRN: 0.20ML/H; CR: 0.26ML/H; CRH: 0.28ML/H, ED: 0.10ML (BLOCKING TIME 1 HOUR)?FIRST ADMIN DATE: 2...
     Route: 058

REACTIONS (3)
  - Intestinal operation [Unknown]
  - Infusion site infection [Not Recovered/Not Resolved]
  - Infusion site inflammation [Unknown]

NARRATIVE: CASE EVENT DATE: 20250101
